FAERS Safety Report 24440840 (Version 1)
Quarter: 2024Q4

REPORT INFORMATION
  Report Type: Spontaneous
  Country: US (occurrence: US)
  Receive Date: 20241016
  Receipt Date: 20241016
  Transmission Date: 20250115
  Serious: No
  Sender: JOHNSON AND JOHNSON
  Company Number: US-JNJFOC-20241016125

PATIENT

DRUGS (2)
  1. TREMFYA [Suspect]
     Active Substance: GUSELKUMAB
     Indication: Psoriasis
     Route: 065
  2. TREMFYA [Suspect]
     Active Substance: GUSELKUMAB

REACTIONS (6)
  - Adverse drug reaction [Unknown]
  - Illness [Unknown]
  - Oral mucosal erythema [Unknown]
  - Thermal burn [Unknown]
  - Herpes zoster [Unknown]
  - Haemoglobin decreased [Unknown]
